FAERS Safety Report 5659898-1 (Version None)
Quarter: 2008Q1

REPORT INFORMATION
  Report Type: 
  Country: None (occurrence: None)
  Receive Date: 20080311
  Receipt Date: 20070811
  Transmission Date: 20080703
  Serious: No
  Sender: FDA-Public Use
  Company Number: US-BAYER-200712591BCC

PATIENT
  Age: 17 Year
  Sex: Male
  Weight: 79 kg

DRUGS (5)
  1. ALEVE [Suspect]
     Indication: DRUG USE FOR UNKNOWN INDICATION
     Route: 048
     Dates: start: 20070811
  2. STRATTERA [Concomitant]
  3. ABILIFY [Concomitant]
  4. PAXIL [Concomitant]
  5. FLAGYL [Concomitant]

REACTIONS (2)
  - NO ADVERSE EVENT [None]
  - OVERDOSE [None]
